FAERS Safety Report 7125638-2 (Version None)
Quarter: 2010Q4

REPORT INFORMATION
  Report Type: 
  Country: None (occurrence: None)
  Receive Date: 20101129
  Receipt Date: 20101118
  Transmission Date: 20110411
  Serious: Yes (Hospitalization)
  Sender: FDA-Public Use
  Company Number: US-JNJFOC-20101107278

PATIENT
  Sex: Male
  Weight: 63.8 kg

DRUGS (3)
  1. INFLIXIMAB, RECOMBINANT [Suspect]
     Indication: INFLAMMATORY BOWEL DISEASE
     Route: 042
  2. INFLIXIMAB, RECOMBINANT [Suspect]
     Route: 042
  3. IMODIUM [Concomitant]

REACTIONS (5)
  - ILEOSTOMY [None]
  - ILEOSTOMY CLOSURE [None]
  - INTESTINAL ANASTOMOSIS [None]
  - INTESTINAL RESECTION [None]
  - RESECTION OF RECTUM [None]
